FAERS Safety Report 5795381-0 (Version None)
Quarter: 2008Q2

REPORT INFORMATION
  Report Type: 
  Country: None (occurrence: None)
  Receive Date: 20080630
  Receipt Date: 20080624
  Transmission Date: 20081010
  Serious: Yes (Other)
  Sender: FDA-Public Use
  Company Number: BE-PFIZER INC-2008043623

PATIENT
  Sex: Female
  Weight: 67 kg

DRUGS (6)
  1. SUTENT [Suspect]
     Indication: RENAL CELL CARCINOMA
     Route: 048
     Dates: start: 20080414, end: 20080511
  2. TAMOXIFEN [Concomitant]
     Route: 048
  3. MEDROL [Concomitant]
     Dosage: DAILY DOSE:16MG
     Route: 048
     Dates: start: 20080201, end: 20080428
  4. MEDROL [Concomitant]
     Dosage: DAILY DOSE:8MG
     Route: 048
     Dates: start: 20080428, end: 20080515
  5. RANITIDINE HCL [Concomitant]
     Dosage: DAILY DOSE:300MG
     Route: 048
  6. LITICAN [Concomitant]
     Route: 048

REACTIONS (2)
  - PETECHIAE [None]
  - THROMBOCYTOPENIA [None]
